FAERS Safety Report 17547263 (Version 1)
Quarter: 2020Q1

REPORT INFORMATION
  Report Type: Spontaneous
  Country: DE (occurrence: DE)
  Receive Date: 20200316
  Receipt Date: 20200316
  Transmission Date: 20200409
  Serious: Yes (Other)
  Sender: FDA-Public Use
  Company Number: NVSC2020DE074324

PATIENT
  Sex: Male

DRUGS (2)
  1. NEVANAC [Suspect]
     Active Substance: NEPAFENAC
     Indication: POSTOPERATIVE CARE
     Dosage: 0.1%/1 MG/ML
     Route: 047
  2. NEVANAC [Suspect]
     Active Substance: NEPAFENAC
     Dosage: UNK, QD (0.3%/3 MG/ML)
     Route: 047

REACTIONS (3)
  - Glaucoma [Unknown]
  - Product physical consistency issue [Unknown]
  - Product administration error [Unknown]
